FAERS Safety Report 9853712 (Version 1)
Quarter: 2014Q1

REPORT INFORMATION
  Report Type: Spontaneous
  Country: US (occurrence: US)
  Receive Date: 20140129
  Receipt Date: 20140129
  Transmission Date: 20141002
  Serious: No
  Sender: FDA-Public Use
  Company Number: US-GLAXOSMITHKLINE-A1009639A

PATIENT
  Sex: Male

DRUGS (4)
  1. BUPROPION HYDROCHLORIDE [Suspect]
     Indication: SMOKING CESSATION THERAPY
     Dosage: 75MG TWICE PER DAY
     Route: 048
     Dates: start: 20130119
  2. ZOLOFT [Concomitant]
  3. LAMICTAL [Concomitant]
  4. TRAZODONE [Concomitant]

REACTIONS (1)
  - Therapeutic response decreased [Unknown]
